FAERS Safety Report 4615392-8 (Version None)
Quarter: 2005Q1

REPORT INFORMATION
  Report Type: 
  Country: None (occurrence: None)
  Receive Date: 20050317
  Receipt Date: 20050303
  Transmission Date: 20050727
  Serious: Yes (Life-Threatening, Hospitalization)
  Sender: FDA-Public Use
  Company Number: DSA_26032_2005

PATIENT
  Age: 78 Year
  Sex: Female

DRUGS (12)
  1. TEVETEN [Suspect]
     Dosage: 800 MG Q DAY PO
     Route: 048
     Dates: end: 20050103
  2. SANDO K [Suspect]
     Indication: BLOOD POTASSIUM DECREASED
     Dosage: DF
     Dates: start: 20050102, end: 20050103
  3. THYROXINE [Concomitant]
  4. OMEPRAZOLE [Concomitant]
  5. VERAPAMIL [Concomitant]
  6. FRUSEMIDE [Concomitant]
  7. CEFUROXIME [Concomitant]
  8. CLARITHROMYCIN [Concomitant]
  9. ALBUTEROL [Concomitant]
  10. PREDNISOLONE [Concomitant]
  11. METOCLOPRAMIDE [Concomitant]
  12. METRONIDAZOLE [Concomitant]

REACTIONS (5)
  - BLOOD POTASSIUM DECREASED [None]
  - BLOOD POTASSIUM INCREASED [None]
  - BRADYCARDIA [None]
  - ELECTROMECHANICAL DISSOCIATION [None]
  - PRODUCTIVE COUGH [None]
